FAERS Safety Report 15837702 (Version 2)
Quarter: 2019Q1

REPORT INFORMATION
  Report Type: Report from Study
  Country: CA (occurrence: CA)
  Receive Date: 20190117
  Receipt Date: 20190121
  Transmission Date: 20190417
  Serious: Yes (Other)
  Sender: FDA-Public Use
  Company Number: CA-SA-2017SA003926

PATIENT
  Age: 29 Year
  Sex: Female

DRUGS (13)
  1. ACICLOVIR [Concomitant]
     Active Substance: ACYCLOVIR
     Dosage: UNK
  2. GRAVOL [Concomitant]
     Active Substance: DIMENHYDRINATE
     Indication: PREMEDICATION
     Dosage: 50 MG,PRN
     Route: 048
     Dates: start: 20170104
  3. RANITIDINE. [Concomitant]
     Active Substance: RANITIDINE
     Indication: PREMEDICATION
     Dosage: 150 MG,BID
     Route: 048
     Dates: start: 20170104, end: 20170106
  4. ACETAMINOPHEN. [Concomitant]
     Active Substance: ACETAMINOPHEN
     Indication: PREMEDICATION
     Dosage: 1 G,PRN
     Route: 048
     Dates: start: 20170104
  5. SYMBICORT [Concomitant]
     Active Substance: BUDESONIDE\FORMOTEROL FUMARATE DIHYDRATE
     Indication: ASTHMA
     Dosage: UNK UNK,PRN
     Route: 055
  6. METHYLPREDNISOLONE. [Concomitant]
     Active Substance: METHYLPREDNISOLONE
     Indication: PREMEDICATION
     Dosage: 500 MG,UNK
     Route: 042
     Dates: start: 20170104, end: 20170106
  7. CLONAZEPAM. [Concomitant]
     Active Substance: CLONAZEPAM
     Indication: ANXIETY
     Route: 048
  8. FAMCICLOVIR. [Concomitant]
     Active Substance: FAMCICLOVIR
     Indication: PREMEDICATION
     Dosage: 250 MG,UNK
     Route: 048
     Dates: start: 20170104
  9. DEXILANT [Concomitant]
     Active Substance: DEXLANSOPRAZOLE
     Route: 048
  10. QUETIAPINE. [Concomitant]
     Active Substance: QUETIAPINE
     Indication: ANXIETY
     Route: 048
  11. ALEMTUZUMAB [Suspect]
     Active Substance: ALEMTUZUMAB
     Indication: RELAPSING-REMITTING MULTIPLE SCLEROSIS
     Dosage: 12 MG,QD
     Route: 041
     Dates: start: 20170104, end: 20170106
  12. REACTINE [CETIRIZINE HYDROCHLORIDE] [Concomitant]
     Active Substance: CETIRIZINE HYDROCHLORIDE
     Indication: PREMEDICATION
     Dosage: 10 MG,PRN
     Route: 048
     Dates: start: 20170104
  13. DITROPAN [Concomitant]
     Active Substance: OXYBUTYNIN CHLORIDE
     Route: 048

REACTIONS (71)
  - Multiple sclerosis relapse [Not Recovered/Not Resolved]
  - Odynophagia [Recovered/Resolved]
  - Rash generalised [Recovered/Resolved]
  - Nausea [Not Recovered/Not Resolved]
  - Urinary tract infection [Not Recovered/Not Resolved]
  - Fungal infection [Recovered/Resolved]
  - Musculoskeletal stiffness [Not Recovered/Not Resolved]
  - Bacterial vaginosis [Not Recovered/Not Resolved]
  - Unevaluable event [Not Recovered/Not Resolved]
  - Dizziness [Not Recovered/Not Resolved]
  - Haemorrhage [Not Recovered/Not Resolved]
  - Burning sensation [Not Recovered/Not Resolved]
  - Pollakiuria [Not Recovered/Not Resolved]
  - Constipation [Not Recovered/Not Resolved]
  - Musculoskeletal chest pain [Not Recovered/Not Resolved]
  - Diarrhoea [Not Recovered/Not Resolved]
  - White blood cell count decreased [Recovered/Resolved]
  - Sinusitis [Not Recovered/Not Resolved]
  - Sinonasal obstruction [Not Recovered/Not Resolved]
  - Hypersensitivity [Not Recovered/Not Resolved]
  - Diarrhoea [Not Recovered/Not Resolved]
  - Deafness unilateral [Not Recovered/Not Resolved]
  - Nasal congestion [Recovered/Resolved]
  - Contusion [Not Recovered/Not Resolved]
  - Band sensation [Not Recovered/Not Resolved]
  - Haemoglobin urine present [Not Recovered/Not Resolved]
  - Chest discomfort [Recovered/Resolved]
  - Chills [Not Recovered/Not Resolved]
  - Nasal discharge discolouration [Not Recovered/Not Resolved]
  - Haemorrhoids [Not Recovered/Not Resolved]
  - Skin discolouration [Not Recovered/Not Resolved]
  - Spinal pain [Not Recovered/Not Resolved]
  - Pharyngeal oedema [Not Recovered/Not Resolved]
  - Haematochezia [Not Recovered/Not Resolved]
  - Nausea [Not Recovered/Not Resolved]
  - Urine abnormality [Recovered/Resolved]
  - Photosensitivity reaction [Recovered/Resolved]
  - Palpitations [Not Recovered/Not Resolved]
  - White blood cells urine positive [Recovered/Resolved]
  - Hypoaesthesia [Not Recovered/Not Resolved]
  - Condition aggravated [Not Recovered/Not Resolved]
  - Dyspnoea [Recovered/Resolved]
  - Abdominal pain [Not Recovered/Not Resolved]
  - Tinea infection [Not Recovered/Not Resolved]
  - Migraine [Not Recovered/Not Resolved]
  - Back pain [Not Recovered/Not Resolved]
  - Allergy to arthropod bite [Recovered/Resolved]
  - Malaise [Not Recovered/Not Resolved]
  - Drug hypersensitivity [Not Recovered/Not Resolved]
  - Pain in extremity [Not Recovered/Not Resolved]
  - Hot flush [Not Recovered/Not Resolved]
  - Lymphocyte count decreased [Recovered/Resolved]
  - Hordeolum [Not Recovered/Not Resolved]
  - Chromaturia [Recovered/Resolved]
  - Productive cough [Not Recovered/Not Resolved]
  - Dizziness [Not Recovered/Not Resolved]
  - Fatigue [Not Recovered/Not Resolved]
  - Pyrexia [Not Recovered/Not Resolved]
  - Gastrointestinal disorder [Not Recovered/Not Resolved]
  - Culture urine positive [Unknown]
  - Ear pain [Not Recovered/Not Resolved]
  - Nasal congestion [Not Recovered/Not Resolved]
  - Gingival bleeding [Recovered/Resolved]
  - Headache [Not Recovered/Not Resolved]
  - Blood creatinine increased [Recovered/Resolved]
  - Feeling hot [Recovered/Resolved]
  - Red blood cells urine positive [Recovered/Resolved]
  - Headache [Recovered/Resolved]
  - Specific gravity urine decreased [Recovered/Resolved]
  - Ear discomfort [Not Recovered/Not Resolved]
  - Throat irritation [Not Recovered/Not Resolved]

NARRATIVE: CASE EVENT DATE: 201610
